FAERS Safety Report 6666913-5 (Version None)
Quarter: 2010Q1

REPORT INFORMATION
  Report Type: 
  Country: None (occurrence: None)
  Receive Date: 20100331
  Receipt Date: 20100319
  Transmission Date: 20100710
  Serious: Yes (Disabling)
  Sender: FDA-Public Use
  Company Number: LEO-2010-00224

PATIENT
  Age: 30 Year
  Sex: Female
  Weight: 49 kg

DRUGS (7)
  1. INNOHEP [Suspect]
     Indication: ANTITHROMBIN III DEFICIENCY
     Dosage: SEE IMAGE
     Route: 058
     Dates: start: 20040201, end: 20040630
  2. INNOHEP [Suspect]
     Indication: ANTITHROMBIN III DEFICIENCY
     Dosage: SEE IMAGE
     Route: 058
     Dates: start: 20040701, end: 20040903
  3. INNOHEP [Suspect]
     Indication: ANTITHROMBIN III DEFICIENCY
     Dosage: SEE IMAGE
     Route: 058
     Dates: start: 20040904, end: 20041003
  4. INNOHEP [Suspect]
     Indication: ANTITHROMBIN III DEFICIENCY
     Dosage: SEE IMAGE
     Route: 058
     Dates: start: 20041004, end: 20041016
  5. INNOHEP [Suspect]
     Indication: ANTITHROMBIN III DEFICIENCY
     Dosage: SEE IMAGE
     Route: 058
     Dates: start: 20041017
  6. CALCIUM (CALCIUM) [Concomitant]
  7. IRON (IRON) [Concomitant]

REACTIONS (6)
  - DRUG EXPOSURE DURING PREGNANCY [None]
  - HAEMORRHAGE [None]
  - OSTEOPOROSIS [None]
  - SPINAL COMPRESSION FRACTURE [None]
  - SPINAL FRACTURE [None]
  - STERNAL FRACTURE [None]
